FAERS Safety Report 8824863 (Version 1)
Quarter: 2012Q4

REPORT INFORMATION
  Report Type: 
  Country: TH (occurrence: TH)
  Receive Date: 20121004
  Receipt Date: 20121004
  Transmission Date: 20130627
  Serious: Yes (Death)
  Sender: FDA-Public Use
  Company Number: TH-PFIZER INC-2012242174

PATIENT
  Age: 53 Year
  Sex: Male

DRUGS (1)
  1. SUTENT [Suspect]
     Indication: METASTATIC RENAL CELL CARCINOMA
     Dosage: 50 mg, 1x/day
     Route: 048

REACTIONS (2)
  - Pulmonary oedema [Fatal]
  - Fatigue [Unknown]
